FAERS Safety Report 8073028-0 (Version None)
Quarter: 2012Q1

REPORT INFORMATION
  Report Type: 
  Country: None (occurrence: None)
  Receive Date: 20120120
  Receipt Date: 20120104
  Transmission Date: 20120608
  Serious: Yes (Death)
  Sender: FDA-Public Use
  Company Number: 1157187

PATIENT
  Sex: Male

DRUGS (5)
  1. COCAINE [Suspect]
     Dosage: NOT REPORTED
  2. ETHANOL [Concomitant]
  3. CODEINE SULFATE [Suspect]
     Dosage: NOT REPORTED
  4. MARIJUANA [Concomitant]
  5. MORPHINE SULFATE [Suspect]
     Dosage: NOT REPORTED

REACTIONS (4)
  - DRUG ABUSE [None]
  - POISONING [None]
  - RESPIRATORY ARREST [None]
  - CARDIAC ARREST [None]
